FAERS Safety Report 14163414 (Version 2)
Quarter: 2017Q4

REPORT INFORMATION
  Report Type: Spontaneous
  Country: JP (occurrence: JP)
  Receive Date: 20171106
  Receipt Date: 20171219
  Transmission Date: 20180321
  Serious: Yes (Hospitalization, Other)
  Sender: FDA-Public Use
  Company Number: PHJP2017JP032384

PATIENT
  Age: 52 Year
  Sex: Female
  Weight: 62 kg

DRUGS (4)
  1. NEORAL [Suspect]
     Active Substance: CYCLOSPORINE
     Indication: MYASTHENIA GRAVIS
     Dosage: 180 MG, UNK
     Route: 048
  2. TACROLIMUS. [Concomitant]
     Active Substance: TACROLIMUS
     Indication: MYASTHENIA GRAVIS
     Dosage: UNK
     Route: 065
  3. LOCHOL [Suspect]
     Active Substance: FLUVASTATIN SODIUM
     Indication: LIPIDS ABNORMAL
     Dosage: UNK
     Route: 048
  4. ZETIA [Suspect]
     Active Substance: EZETIMIBE
     Indication: LIPIDS ABNORMAL
     Dosage: UNK
     Route: 065

REACTIONS (6)
  - Myasthenia gravis [Recovered/Resolved]
  - Therapeutic response decreased [Unknown]
  - Immunosuppressant drug level increased [Unknown]
  - Product use in unapproved indication [Unknown]
  - Renal impairment [Recovered/Resolved]
  - Lipids abnormal [Not Recovered/Not Resolved]

NARRATIVE: CASE EVENT DATE: 20171030
